FAERS Safety Report 7629455-6 (Version None)
Quarter: 2011Q3

REPORT INFORMATION
  Report Type: 
  Country: None (occurrence: None)
  Receive Date: 20110715
  Receipt Date: 20110630
  Transmission Date: 20111222
  Serious: Yes (Hospitalization, Other)
  Sender: FDA-Public Use
  Company Number: AUR-APL-2011-00475

PATIENT
  Age: 74 Year
  Sex: Male

DRUGS (4)
  1. EFAVIRENZ [Concomitant]
  2. METFORMIN HCL [Suspect]
     Indication: TYPE 2 DIABETES MELLITUS
     Dosage: 2550 MG (850 MG,3 IN 1 D)
  3. TENOFOVIR DISOPROXIL FUMARATE [Suspect]
     Indication: HIV INFECTION
     Dosage: 300 MG (300 MG,1 IN 1 D)
  4. EMTRICITABINE [Concomitant]

REACTIONS (10)
  - TACHYPNOEA [None]
  - MULTIPLE SCLEROSIS [None]
  - RENAL FAILURE ACUTE [None]
  - NAUSEA [None]
  - OXYGEN SATURATION DECREASED [None]
  - DEHYDRATION [None]
  - OLIGURIA [None]
  - HAEMODIALYSIS [None]
  - LACTIC ACIDOSIS [None]
  - HEART RATE INCREASED [None]
